FAERS Safety Report 10853599 (Version 1)
Quarter: 2015Q1

REPORT INFORMATION
  Report Type: Spontaneous
  Country: BR (occurrence: BR)
  Receive Date: 20150223
  Receipt Date: 20150223
  Transmission Date: 20150721
  Serious: Yes (Hospitalization, Other)
  Sender: FDA-Public Use
  Company Number: BR-JNJFOC-20150213939

PATIENT
  Age: 90 Year
  Sex: Female

DRUGS (8)
  1. HISTOACRYL [Suspect]
     Active Substance: ENBUCRILATE
     Indication: AORTIC ANEURYSM RUPTURE
     Route: 050
  2. LIPIODOL [Suspect]
     Active Substance: ETHIODIZED OIL
     Indication: AORTIC ANEURYSM RUPTURE
     Route: 050
  3. LIPIODOL [Suspect]
     Active Substance: ETHIODIZED OIL
     Indication: AORTIC ANEURYSM RUPTURE
     Route: 050
  4. EVICEL [Suspect]
     Active Substance: FIBRINOGEN HUMAN\THROMBIN HUMAN
     Indication: AORTIC ANEURYSM RUPTURE
     Route: 061
  5. HISTOACRYL [Suspect]
     Active Substance: ENBUCRILATE
     Indication: AORTIC ANEURYSM RUPTURE
     Route: 050
  6. EVICEL [Suspect]
     Active Substance: FIBRINOGEN HUMAN\THROMBIN HUMAN
     Indication: AORTIC ANEURYSM RUPTURE
     Route: 061
  7. EVICEL [Suspect]
     Active Substance: FIBRINOGEN HUMAN\THROMBIN HUMAN
     Indication: AORTIC ANEURYSM RUPTURE
     Route: 061
  8. ALL OTHER THERAPEUTIC PRODUCT [Concomitant]
     Active Substance: UNSPECIFIED INGREDIENT
     Indication: AORTIC ANEURYSM RUPTURE

REACTIONS (7)
  - Drug ineffective for unapproved indication [Recovered/Resolved]
  - Haemoglobin decreased [Recovered/Resolved]
  - Lung disorder [Recovered/Resolved]
  - Off label use [Recovered/Resolved]
  - Abdominal pain [Recovered/Resolved]
  - Ileus paralytic [Recovered/Resolved]
  - Renal impairment [Recovered/Resolved]
